FAERS Safety Report 25953712 (Version 2)
Quarter: 2025Q4

REPORT INFORMATION
  Report Type: Report from Study
  Country: CA (occurrence: CA)
  Receive Date: 20251023
  Receipt Date: 20251205
  Transmission Date: 20260118
  Serious: No
  Sender: AMGEN
  Company Number: CA-BEH-2025220152

PATIENT
  Age: 80 Year
  Sex: Male

DRUGS (3)
  1. AVACOPAN [Suspect]
     Active Substance: AVACOPAN
     Indication: Product used for unknown indication
     Dosage: 10 MG, TID (3 CAPSULES ORALLY TRICE A DAY AS DIRECTED)
     Route: 048
     Dates: start: 20240904
  2. AVACOPAN [Suspect]
     Active Substance: AVACOPAN
     Dosage: UNK
     Route: 048
     Dates: start: 20250912, end: 202509
  3. RITUXIMAB [Concomitant]
     Active Substance: RITUXIMAB
     Dosage: UNK
     Route: 065
     Dates: end: 202509

REACTIONS (1)
  - White blood cell count decreased [Not Recovered/Not Resolved]

NARRATIVE: CASE EVENT DATE: 20250901
